FAERS Safety Report 8884553 (Version 1)
Quarter: 2012Q4

REPORT INFORMATION
  Report Type: 
  Country: US (occurrence: US)
  Receive Date: 20121102
  Receipt Date: 20121102
  Transmission Date: 20130627
  Serious: No
  Sender: FDA-Public Use
  Company Number: US-ASTRAZENECA-2012SE16739

PATIENT
  Age: 43 Year
  Sex: Female

DRUGS (4)
  1. CRESTOR [Suspect]
     Route: 048
  2. SEROQUEL [Concomitant]
  3. LIBRIUM [Concomitant]
  4. PAXIL [Concomitant]

REACTIONS (2)
  - Pain [Unknown]
  - Drug hypersensitivity [Unknown]
